FAERS Safety Report 5411257-2 (Version None)
Quarter: 2007Q3

REPORT INFORMATION
  Report Type: 
  Country: None (occurrence: None)
  Receive Date: 20070808
  Receipt Date: 20070727
  Transmission Date: 20080115
  Serious: Yes (Hospitalization)
  Sender: FDA-Public Use
  Company Number: 2007-02510

PATIENT
  Age: 65 Year
  Sex: Female

DRUGS (6)
  1. VELCADE [Suspect]
     Indication: MULTIPLE MYELOMA
     Dosage: 1.30 MG/M2, INTRAVENOUS
     Route: 042
     Dates: start: 20070706
  2. THALIDOMIDE [Concomitant]
  3. DEXAMETHASONE 0.5MG TAB [Concomitant]
  4. TRAMADOL HCL [Concomitant]
  5. LOMAC [Concomitant]
  6. ONDANSETRON HCL [Concomitant]

REACTIONS (8)
  - ACUTE RESPIRATORY DISTRESS SYNDROME [None]
  - BONE DISORDER [None]
  - CANDIDIASIS [None]
  - HYPERTENSION [None]
  - LEFT VENTRICULAR HYPERTROPHY [None]
  - PLEURAL EFFUSION [None]
  - PNEUMONIA [None]
  - SPUTUM CULTURE POSITIVE [None]
